FAERS Safety Report 13566460 (Version 1)
Quarter: 2017Q2

REPORT INFORMATION
  Report Type: Spontaneous
  Country: CA (occurrence: CA)
  Receive Date: 20170522
  Receipt Date: 20170522
  Transmission Date: 20170830
  Serious: Yes (Death)
  Sender: FDA-Public Use
  Company Number: CA-TEVA-770192ACC

PATIENT
  Age: 62 Year
  Sex: Female
  Weight: 103 kg

DRUGS (2)
  1. CODEINE [Suspect]
     Active Substance: CODEINE
     Route: 065
  2. VENLAFAXINE XR [Suspect]
     Active Substance: VENLAFAXINE HYDROCHLORIDE

REACTIONS (3)
  - Overdose [Fatal]
  - Antidepressant drug level above therapeutic [Fatal]
  - Drug level above therapeutic [Fatal]
